FAERS Safety Report 22261081 (Version 1)
Quarter: 2023Q2

REPORT INFORMATION
  Report Type: Spontaneous
  Country: US (occurrence: US)
  Receive Date: 20230427
  Receipt Date: 20230427
  Transmission Date: 20230721
  Serious: No
  Sender: FDA-Public Use
  Company Number: US-MYLANLABS-2023M1041062

PATIENT
  Sex: Female

DRUGS (1)
  1. SEMGLEE (INSULIN GLARGINE-YFGN) [Suspect]
     Active Substance: INSULIN GLARGINE-YFGN
     Indication: Diabetes mellitus
     Dosage: UNK
     Route: 058
     Dates: start: 2022

REACTIONS (6)
  - Device defective [Unknown]
  - Needle issue [Unknown]
  - Device breakage [Unknown]
  - Device leakage [Unknown]
  - Product storage error [Unknown]
  - Product dispensing error [Unknown]

NARRATIVE: CASE EVENT DATE: 20230416
